FAERS Safety Report 17398149 (Version 1)
Quarter: 2020Q1

REPORT INFORMATION
  Report Type: Spontaneous
  Country: NL (occurrence: NL)
  Receive Date: 20200210
  Receipt Date: 20200210
  Transmission Date: 20200409
  Serious: Yes (Hospitalization, Other)
  Sender: FDA-Public Use
  Company Number: NL-MYLANLABS-2020M1014081

PATIENT
  Age: 58 Year
  Sex: Male
  Weight: 78 kg

DRUGS (2)
  1. IBUPROFEN. [Suspect]
     Active Substance: IBUPROFEN
     Indication: GOUT
     Dosage: 300MG 3X DAG ZO NODIG
     Route: 048
     Dates: start: 2019, end: 20191118
  2. DICLOFENAC SODIUM. [Interacting]
     Active Substance: DICLOFENAC SODIUM
     Indication: GOUT
     Dosage: 2X PER DAG 1 STUK
     Route: 054
     Dates: start: 20190719, end: 20191118

REACTIONS (3)
  - Gastric ulcer haemorrhage [Recovering/Resolving]
  - Drug interaction [Recovering/Resolving]
  - Renal failure [Recovering/Resolving]

NARRATIVE: CASE EVENT DATE: 201911
